FAERS Safety Report 12531409 (Version 1)
Quarter: 2016Q3

REPORT INFORMATION
  Report Type: Spontaneous
  Country: CN (occurrence: CN)
  Receive Date: 20160706
  Receipt Date: 20160706
  Transmission Date: 20161109
  Serious: Yes (Hospitalization, Other)
  Sender: FDA-Public Use
  Company Number: CN-BRISTOL-MYERS SQUIBB COMPANY-BMS-2016-054473

PATIENT
  Age: 67 Year
  Sex: Male

DRUGS (1)
  1. WARFARIN SODIUM. [Suspect]
     Active Substance: WARFARIN SODIUM
     Indication: ATRIAL FIBRILLATION
     Dosage: 3 MG, QD
     Route: 065

REACTIONS (8)
  - Small intestinal obstruction [Recovered/Resolved]
  - Coagulopathy [Recovered/Resolved]
  - Necrosis [Recovered/Resolved]
  - Peritonitis [Recovered/Resolved]
  - Haemorrhagic ascites [Recovered/Resolved]
  - Laparotomy [Unknown]
  - Ileectomy [Unknown]
  - Intestinal haematoma [Recovered/Resolved]
